FAERS Safety Report 13757230 (Version 1)
Quarter: 2017Q3

REPORT INFORMATION
  Report Type: Spontaneous
  Country: US (occurrence: US)
  Receive Date: 20170714
  Receipt Date: 20170714
  Transmission Date: 20171127
  Serious: Yes (Other)
  Sender: FDA-Public Use
  Company Number: None

PATIENT
  Age: 35 Year
  Sex: Female
  Weight: 117.9 kg

DRUGS (1)
  1. TYSABRI [Suspect]
     Active Substance: NATALIZUMAB
     Indication: MULTIPLE SCLEROSIS
     Dosage: ?          OTHER DOSE:MG;OTHER FREQUENCY:1 EVERY 4 WEEKS;?300 MG INTRVENOUS DRIP
     Route: 041
     Dates: start: 20170324, end: 20170713

REACTIONS (3)
  - Flushing [None]
  - Chest discomfort [None]
  - Muscle twitching [None]

NARRATIVE: CASE EVENT DATE: 20170713
